FAERS Safety Report 7428492-4 (Version None)
Quarter: 2011Q2

REPORT INFORMATION
  Report Type: 
  Country: None (occurrence: None)
  Receive Date: 20110421
  Receipt Date: 20110415
  Transmission Date: 20111010
  Serious: Yes (Death, Hospitalization)
  Sender: FDA-Public Use
  Company Number: CA-SANOFI-AVENTIS-2011SA023177

PATIENT
  Age: 66 Year

DRUGS (4)
  1. FLUOROURACIL [Concomitant]
  2. OXALIPLATIN [Suspect]
  3. LEUCOVORIN [Concomitant]
  4. IRINOTECAN HCL [Concomitant]

REACTIONS (5)
  - SEPSIS [None]
  - GASTROINTESTINAL HAEMORRHAGE [None]
  - PANCYTOPENIA [None]
  - THROMBOCYTOPENIA [None]
  - FEBRILE NEUTROPENIA [None]
